FAERS Safety Report 4965330-3 (Version None)
Quarter: 2006Q2

REPORT INFORMATION
  Report Type: 
  Country: None (occurrence: None)
  Receive Date: 20060406
  Receipt Date: 20051115
  Transmission Date: 20061013
  Serious: Yes (Hospitalization, Disabling)
  Sender: FDA-Public Use
  Company Number: US-MERCK-0511USA02479

PATIENT
  Age: 51 Year
  Sex: Male
  Weight: 80 kg

DRUGS (3)
  1. VIOXX [Suspect]
     Indication: JOINT SWELLING
     Route: 048
     Dates: start: 20020101, end: 20030101
  2. VIOXX [Suspect]
     Route: 048
  3. OXYCODONE [Concomitant]
     Route: 065

REACTIONS (9)
  - ARTERIAL DISORDER [None]
  - CARDIAC MURMUR [None]
  - CORONARY ARTERY DISEASE [None]
  - INJURY [None]
  - KNEE OPERATION [None]
  - MENISCUS LESION [None]
  - MITRAL VALVE DISEASE [None]
  - MITRAL VALVE REPAIR [None]
  - PULMONARY OEDEMA [None]
